FAERS Safety Report 6160237-0 (Version None)
Quarter: 2009Q2

REPORT INFORMATION
  Report Type: 
  Country: None (occurrence: None)
  Receive Date: 20090420
  Receipt Date: 20090410
  Transmission Date: 20091009
  Serious: Yes (Hospitalization)
  Sender: FDA-Public Use
  Company Number: B0569472A

PATIENT
  Sex: Male
  Weight: 85 kg

DRUGS (4)
  1. AUGMENTIN '125' [Suspect]
     Dosage: 1UNIT TWICE PER DAY
     Dates: start: 20090221, end: 20090224
  2. VIDEX [Concomitant]
     Route: 065
     Dates: start: 20010101, end: 20090301
  3. EMTRIVA [Concomitant]
     Route: 065
     Dates: start: 20010101, end: 20090301
  4. SUSTIVA [Concomitant]
     Route: 065
     Dates: start: 20010101, end: 20090301

REACTIONS (13)
  - CHROMATURIA [None]
  - COAGULATION FACTOR V LEVEL DECREASED [None]
  - DRUG RASH WITH EOSINOPHILIA AND SYSTEMIC SYMPTOMS [None]
  - FAECES DISCOLOURED [None]
  - HAEMOGLOBIN DECREASED [None]
  - HEPATITIS FULMINANT [None]
  - INFLAMMATION [None]
  - JAUNDICE [None]
  - MACROPHAGE ACTIVATION [None]
  - PROTHROMBIN TIME RATIO DECREASED [None]
  - PRURIGO [None]
  - PYREXIA [None]
  - RASH MACULAR [None]
